FAERS Safety Report 10727941 (Version 2)
Quarter: 2015Q3

REPORT INFORMATION
  Report Type: Report from Study
  Country: US (occurrence: US)
  Receive Date: 20150121
  Receipt Date: 20150724
  Transmission Date: 20151125
  Serious: Yes (Other)
  Sender: FDA-Public Use
  Company Number: US-CELGENE-USA-2015012432

PATIENT
  Age: 74 Year
  Sex: Male
  Weight: 73.7 kg

DRUGS (1)
  1. REVLIMID [Suspect]
     Active Substance: LENALIDOMIDE
     Indication: PLASMA CELL MYELOMA
     Dosage: 10 MILLIGRAM
     Route: 048
     Dates: start: 20110131, end: 20120611

REACTIONS (1)
  - Second primary malignancy [Recovered/Resolved]

NARRATIVE: CASE EVENT DATE: 20121212
